FAERS Safety Report 7751394-0 (Version None)
Quarter: 2011Q3

REPORT INFORMATION
  Report Type: 
  Country: None (occurrence: None)
  Receive Date: 20110914
  Receipt Date: 20110908
  Transmission Date: 20111222
  Serious: Yes (Hospitalization, Other)
  Sender: FDA-Public Use
  Company Number: SE-PFIZER INC-2011211793

PATIENT
  Age: 37 Year
  Sex: Male

DRUGS (3)
  1. SUTENT [Suspect]
     Dosage: UNK
  2. EFFEXOR [Suspect]
     Dosage: UNK
  3. LYRICA [Suspect]
     Dosage: UNK

REACTIONS (3)
  - TUMOUR RUPTURE [None]
  - INTESTINAL PERFORATION [None]
  - ABDOMINAL PAIN [None]
